FAERS Safety Report 24115878 (Version 2)
Quarter: 2024Q3

REPORT INFORMATION
  Report Type: Spontaneous
  Country: US (occurrence: US)
  Receive Date: 20240721
  Receipt Date: 20240801
  Transmission Date: 20241016
  Serious: Yes (Hospitalization)
  Sender: SANDOZ
  Company Number: US-SANDOZ-SDZ2024US065785

PATIENT
  Age: 64 Year
  Sex: Female
  Weight: 58.5 kg

DRUGS (8)
  1. LINEZOLID [Suspect]
     Active Substance: LINEZOLID
     Indication: Transplantation complication
     Dosage: 600 MG, QD
     Route: 048
     Dates: start: 20240514, end: 20240627
  2. LINEZOLID [Suspect]
     Active Substance: LINEZOLID
     Indication: Mycobacterium abscessus infection
  3. AZITHROMYCIN [Concomitant]
     Active Substance: AZITHROMYCIN
     Indication: Transplantation complication
     Dosage: 250 MG, QD
     Route: 048
     Dates: start: 20240520
  4. AZITHROMYCIN [Concomitant]
     Active Substance: AZITHROMYCIN
     Indication: Mycobacterium abscessus infection
  5. IMIPENEM [Concomitant]
     Active Substance: IMIPENEM
     Indication: Mycobacterium abscessus infection
     Dosage: 500 MG, Q12H
     Route: 042
     Dates: start: 20240515, end: 20240627
  6. IMIPENEM [Concomitant]
     Active Substance: IMIPENEM
     Dosage: 500 MG, Q12H
     Route: 042
     Dates: start: 20240703
  7. MEROPENEM [Concomitant]
     Active Substance: MEROPENEM
     Indication: Mycobacterium abscessus infection
     Dosage: 1 CAP BY MOUTH
     Route: 048
  8. MEROPENEM [Concomitant]
     Active Substance: MEROPENEM
     Dosage: UNK
     Route: 042
     Dates: start: 20240627, end: 20240703

REACTIONS (1)
  - Anaemia [Recovered/Resolved]

NARRATIVE: CASE EVENT DATE: 20240627
